FAERS Safety Report 8254667-0 (Version None)
Quarter: 2012Q2

REPORT INFORMATION
  Report Type: 
  Country: None (occurrence: None)
  Receive Date: 20120403
  Receipt Date: 20120326
  Transmission Date: 20120825
  Serious: Yes (Hospitalization, Other)
  Sender: FDA-Public Use
  Company Number: US-ELI_LILLY_AND_COMPANY-US201202002721

PATIENT
  Sex: Female
  Weight: 61.22 kg

DRUGS (1)
  1. FORTEO [Suspect]
     Indication: OSTEOPOROSIS
     Dosage: 20 UG, QD
     Dates: start: 20110501

REACTIONS (4)
  - BREAST CANCER RECURRENT [None]
  - BLOOD PRESSURE INCREASED [None]
  - HOSPITALISATION [None]
  - VERTEBROPLASTY [None]
